FAERS Safety Report 15449508 (Version 3)
Quarter: 2018Q4

REPORT INFORMATION
  Report Type: Spontaneous
  Country: US (occurrence: US)
  Receive Date: 20181001
  Receipt Date: 20181128
  Transmission Date: 20190204
  Serious: No
  Sender: FDA-Public Use
  Company Number: US-AMGEN-USASP2018132773

PATIENT
  Age: 81 Year
  Sex: Female

DRUGS (1)
  1. PROLIA [Suspect]
     Active Substance: DENOSUMAB
     Indication: OSTEOPOROSIS
     Dosage: UNK
     Route: 065
     Dates: start: 201805

REACTIONS (8)
  - Vulvovaginal pain [Recovered/Resolved]
  - Blood cholesterol increased [Unknown]
  - Abdominal pain [Recovered/Resolved]
  - Proctalgia [Recovered/Resolved]
  - Bone pain [Unknown]
  - Gait disturbance [Unknown]
  - Constipation [Recovered/Resolved]
  - Pain in jaw [Recovered/Resolved]

NARRATIVE: CASE EVENT DATE: 2018
